FAERS Safety Report 8845378 (Version 2)
Quarter: 2013Q1

REPORT INFORMATION
  Report Type: Spontaneous
  Country: US (occurrence: None)
  Receive Date: 20121015
  Receipt Date: 20121031
  Transmission Date: 20140127
  Serious: Yes (Other)
  Sender: FDA-Public Use
  Company Number: OTH-PAT-2012006

PATIENT
  Sex: Female

DRUGS (1)
  1. CYSTADANE [Suspect]
     Indication: HOMOCYSTINURIA
     Dates: start: 20120515

REACTIONS (2)
  - Vomiting [None]
  - Nausea [None]
